FAERS Safety Report 8814728 (Version 1)
Quarter: 2012Q4

REPORT INFORMATION
  Report Type: 
  Country: CZ (occurrence: CZ)
  Receive Date: 20120928
  Receipt Date: 20120928
  Transmission Date: 20130627
  Serious: Yes (Other)
  Sender: FDA-Public Use
  Company Number: CZ-NOVOPROD-360009

PATIENT
  Age: 38 Year
  Sex: Male

DRUGS (3)
  1. ACTRAPID [Suspect]
     Indication: PRODUCT USED FOR UNKNOWN INDICATION
     Dosage: UNK
     Route: 042
  2. GLUCOSE [Suspect]
     Indication: PRODUCT USED FOR UNKNOWN INDICATION
     Dosage: 500 ml, UNK
     Route: 042
     Dates: start: 20120903, end: 20120907
  3. DITHIADEN [Concomitant]

REACTIONS (5)
  - Product quality issue [Unknown]
  - Chills [Unknown]
  - Chills [Unknown]
  - Pyrexia [Unknown]
  - Hypersensitivity [Unknown]
